FAERS Safety Report 8799908 (Version 1)
Quarter: 2012Q4

REPORT INFORMATION
  Report Type: 
  Country: US (occurrence: US)
  Receive Date: 20120919
  Receipt Date: 20120919
  Transmission Date: 20130627
  Serious: No
  Sender: FDA-Public Use
  Company Number: US-009507513-1209USA003825

PATIENT

DRUGS (2)
  1. DULERA [Suspect]
     Indication: ASTHMA EXERCISE INDUCED
     Route: 055
  2. ALBUTEROL [Concomitant]

REACTIONS (2)
  - Treatment failure [Unknown]
  - Drug ineffective [Unknown]
